FAERS Safety Report 7607666-3 (Version None)
Quarter: 2011Q3

REPORT INFORMATION
  Report Type: 
  Country: None (occurrence: None)
  Receive Date: 20110713
  Receipt Date: 20110506
  Transmission Date: 20111222
  Serious: Yes (Other)
  Sender: FDA-Public Use
  Company Number: PHHY2010US79019

PATIENT
  Sex: Female

DRUGS (10)
  1. FIORINAL [Concomitant]
  2. IMITREX [Concomitant]
  3. DEPAKOTE [Concomitant]
  4. TOPAMAX [Concomitant]
  5. AMERGE [Concomitant]
  6. RECLAST [Suspect]
     Dosage: UNK
     Route: 042
     Dates: start: 20100511
  7. MOBIC [Concomitant]
  8. VICODIN [Concomitant]
  9. VITAMIN TAB [Concomitant]
  10. PHENERGAN [Concomitant]

REACTIONS (12)
  - SPLENOMEGALY [None]
  - BLOOD UREA NITROGEN/CREATININE RATIO INCREASED [None]
  - ARTHRALGIA [None]
  - HEADACHE [None]
  - WHITE BLOOD CELL COUNT INCREASED [None]
  - BLOOD BILIRUBIN INCREASED [None]
  - MIGRAINE [None]
  - NEUROPATHY PERIPHERAL [None]
  - VITAMIN B12 INCREASED [None]
  - ABNORMAL CLOTTING FACTOR [None]
  - INFLUENZA LIKE ILLNESS [None]
  - GENERAL PHYSICAL HEALTH DETERIORATION [None]
